FAERS Safety Report 7288104-X (Version None)
Quarter: 2011Q1

REPORT INFORMATION
  Report Type: 
  Country: None (occurrence: None)
  Receive Date: 20110208
  Receipt Date: 20110208
  Transmission Date: 20110831
  Serious: Yes (Life-Threatening, Hospitalization)
  Sender: FDA-Public Use
  Company Number: None

PATIENT
  Age: 69 Year
  Sex: Male
  Weight: 81 kg

DRUGS (3)
  1. WARFARIN SODIUM [Suspect]
     Indication: ATRIAL FIBRILLATION
     Dosage: 5 MG PM PO
     Route: 048
     Dates: start: 20070601, end: 20101006
  2. CLOPIDOGREL [Suspect]
     Indication: CAROTID ARTERY STENOSIS
     Dosage: 75 MG EVERY DAY PO
     Route: 048
     Dates: start: 20090825, end: 20101006
  3. CLOPIDOGREL [Suspect]
     Indication: CAROTID ARTERY OCCLUSION
     Dosage: 75 MG EVERY DAY PO
     Route: 048
     Dates: start: 20090825, end: 20101006

REACTIONS (3)
  - DIZZINESS [None]
  - HAEMORRHAGE [None]
  - HYPOTENSION [None]
